FAERS Safety Report 5629640-9 (Version None)
Quarter: 2008Q1

REPORT INFORMATION
  Report Type: 
  Country: None (occurrence: None)
  Receive Date: 20080218
  Receipt Date: 20080201
  Transmission Date: 20080703
  Serious: Yes (Hospitalization, Congenital Anomaly)
  Sender: FDA-Public Use
  Company Number: A0680258A

PATIENT
  Sex: Female
  Weight: 1.6 kg

DRUGS (4)
  1. PAXIL [Suspect]
     Indication: DRUG USE FOR UNKNOWN INDICATION
     Route: 048
  2. ALBUTEROL [Concomitant]
  3. INDERAL [Concomitant]
  4. DESYREL [Concomitant]

REACTIONS (16)
  - ANAEMIA [None]
  - APNOEA [None]
  - ARRHYTHMIA [None]
  - ATRIAL SEPTAL DEFECT [None]
  - BRADYCARDIA [None]
  - CARDIAC MURMUR [None]
  - CYANOSIS [None]
  - DRUG EXPOSURE DURING PREGNANCY [None]
  - FOETAL DISTRESS SYNDROME [None]
  - HYPERBILIRUBINAEMIA [None]
  - MECONIUM IN AMNIOTIC FLUID [None]
  - PREMATURE BABY [None]
  - PULMONARY VALVE INCOMPETENCE [None]
  - RESPIRATORY DISTRESS [None]
  - TRICUSPID VALVE INCOMPETENCE [None]
  - VENTRICULAR HYPERTROPHY [None]
